FAERS Safety Report 23709805 (Version 1)
Quarter: 2024Q2

REPORT INFORMATION
  Report Type: Spontaneous
  Country: US (occurrence: None)
  Receive Date: 20240405
  Receipt Date: 20240405
  Transmission Date: 20240715
  Serious: No
  Sender: FDA-Public Use
  Company Number: US-ARIS GLOBAL-ADM202312-004983

PATIENT
  Sex: Female
  Weight: 44.45 kg

DRUGS (1)
  1. OSMOLEX ER [Suspect]
     Active Substance: AMANTADINE
     Indication: Product used for unknown indication
     Dosage: NOT PROVIDED

REACTIONS (3)
  - Mental disorder [Unknown]
  - Insomnia [Unknown]
  - Overdose [Unknown]
